FAERS Safety Report 6244513-9 (Version None)
Quarter: 2009Q2

REPORT INFORMATION
  Report Type: 
  Country: None (occurrence: None)
  Receive Date: 20090625
  Receipt Date: 20090616
  Transmission Date: 20091009
  Serious: Yes (Other)
  Sender: FDA-Public Use
  Company Number: MX-AMGEN-US351888

PATIENT
  Age: 6 Year
  Sex: Female

DRUGS (1)
  1. NEULASTIM [Suspect]
     Indication: NEUTROPENIA
     Route: 058
     Dates: start: 20090609, end: 20090609

REACTIONS (5)
  - DYSPNOEA [None]
  - GENERALISED ERYTHEMA [None]
  - HEADACHE [None]
  - HYPOTENSION [None]
  - VOMITING [None]
